FAERS Safety Report 6904939-4 (Version None)
Quarter: 2010Q3

REPORT INFORMATION
  Report Type: 
  Country: None (occurrence: None)
  Receive Date: 20100804
  Receipt Date: 20090807
  Transmission Date: 20110219
  Serious: No
  Sender: FDA-Public Use
  Company Number: US-PFIZER INC-2009226178

PATIENT
  Sex: Female
  Weight: 49.9 kg

DRUGS (2)
  1. LYRICA [Suspect]
     Indication: COMPLEX REGIONAL PAIN SYNDROME
     Dosage: 50 MG, 1X/DAY
     Route: 048
     Dates: start: 20080618
  2. IBUPROFEN [Concomitant]
     Dosage: UNK

REACTIONS (1)
  - PAIN [None]
